FAERS Safety Report 5722887-2 (Version None)
Quarter: 2008Q2

REPORT INFORMATION
  Report Type: 
  Country: None (occurrence: None)
  Receive Date: 20080425
  Receipt Date: 20080417
  Transmission Date: 20081010
  Serious: Yes (Disabling)
  Sender: FDA-Public Use
  Company Number: GXKR2008US03722

PATIENT
  Age: 38 Year
  Sex: Female

DRUGS (11)
  1. FENTANYL [Suspect]
     Indication: ANAESTHESIA
     Dosage: 150 UG
  2. PROPOFOL [Suspect]
     Indication: ANAESTHESIA
     Dosage: 200 MG
  3. SUCCINYLCHOLINE CHLORIDE [Suspect]
     Indication: ANAESTHESIA
     Dosage: 100 MG
  4. ISOFLURANE [Suspect]
     Indication: ANAESTHESIA
     Dosage: IN 33% OXYGEN
  5. NITROUS OXIDE (NITROUS OXIDE) 66% [Suspect]
     Indication: ANAESTHESIA
  6. CEFAZOLIN [Concomitant]
  7. DOLASETRON (DOLASETRON) [Concomitant]
  8. COMPAZINE (PROCHLORPERAZONE EDISYLATE) [Concomitant]
  9. MIDAZOLAM HCL [Concomitant]
  10. BICITRA (CITRIC ACID, SODIUM CITRATE) [Concomitant]
  11. RANITIDINE [Concomitant]

REACTIONS (3)
  - ANAESTHETIC COMPLICATION [None]
  - DEAFNESS NEUROSENSORY [None]
  - DEAFNESS UNILATERAL [None]
